FAERS Safety Report 5824294-0 (Version None)
Quarter: 2008Q3

REPORT INFORMATION
  Report Type: 
  Country: None (occurrence: None)
  Receive Date: 20080722
  Receipt Date: 20080708
  Transmission Date: 20090109
  Serious: Yes (Other)
  Sender: FDA-Public Use
  Company Number: US024056

PATIENT
  Sex: Female

DRUGS (3)
  1. FENTANYL CITRATE [Suspect]
     Indication: ABDOMINAL PAIN
     Dosage: 400 UG BUCCAL
     Route: 002
     Dates: start: 20050101
  2. FENTANYL CITRATE [Suspect]
     Indication: ABDOMINAL PAIN
     Dosage: 600 UG BUCCAL
     Route: 002
     Dates: start: 20050101
  3. FENTANYL [Concomitant]

REACTIONS (4)
  - FATIGUE [None]
  - IMPAIRED DRIVING ABILITY [None]
  - ROAD TRAFFIC ACCIDENT [None]
  - SOMNOLENCE [None]
